FAERS Safety Report 7866184-8 (Version None)
Quarter: 2011Q4

REPORT INFORMATION
  Report Type: 
  Country: None (occurrence: None)
  Receive Date: 20111028
  Receipt Date: 20110509
  Transmission Date: 20120403
  Serious: No
  Sender: FDA-Public Use
  Company Number: US-GLAXOSMITHKLINE-A0926593A

PATIENT
  Sex: Male

DRUGS (5)
  1. ASPIRIN [Concomitant]
  2. SINGULAIR [Concomitant]
  3. ADVAIR DISKUS 100/50 [Suspect]
     Indication: ASTHMA
     Dosage: 1PUFF TWICE PER DAY
     Route: 055
     Dates: start: 20010101
  4. VENTOLIN HFA [Concomitant]
  5. FLUTICASONE PROPIONATE [Concomitant]

REACTIONS (3)
  - BLOOD PRESSURE INCREASED [None]
  - BLOOD CHOLESTEROL INCREASED [None]
  - BLOOD TRIGLYCERIDES INCREASED [None]
